FAERS Safety Report 5790249-8 (Version None)
Quarter: 2008Q2

REPORT INFORMATION
  Report Type: 
  Country: None (occurrence: None)
  Receive Date: 20080626
  Receipt Date: 20080509
  Transmission Date: 20081010
  Serious: No
  Sender: FDA-Public Use
  Company Number: A0706827A

PATIENT

DRUGS (1)
  1. ALLI [Suspect]
     Indication: DRUG USE FOR UNKNOWN INDICATION
     Route: 048

REACTIONS (9)
  - ABDOMINAL DISTENSION [None]
  - ANXIETY [None]
  - DEPRESSED MOOD [None]
  - DRUG INEFFECTIVE [None]
  - FATIGUE [None]
  - FOOD CRAVING [None]
  - GASTROINTESTINAL DISORDER [None]
  - GASTROINTESTINAL SOUNDS ABNORMAL [None]
  - WEIGHT INCREASED [None]
